FAERS Safety Report 7956384-0 (Version None)
Quarter: 2011Q4

REPORT INFORMATION
  Report Type: 
  Country: None (occurrence: None)
  Receive Date: 20111205
  Receipt Date: 20111124
  Transmission Date: 20120403
  Serious: Yes (Other)
  Sender: FDA-Public Use
  Company Number: JP-PFIZER INC-2011292498

PATIENT
  Age: 45 Year
  Sex: Male

DRUGS (1)
  1. CELECOXIB [Suspect]
     Dosage: 100 MG, UNK
     Route: 048
     Dates: start: 20100501, end: 20100501

REACTIONS (1)
  - LIVER DISORDER [None]
